FAERS Safety Report 14937153 (Version 1)
Quarter: 2018Q2

REPORT INFORMATION
  Report Type: Spontaneous
  Country: ES (occurrence: ES)
  Receive Date: 20180525
  Receipt Date: 20180525
  Transmission Date: 20180711
  Serious: Yes (Other)
  Sender: FDA-Public Use
  Company Number: ES-BAXTER-2018BAX015494

PATIENT
  Age: 35 Year
  Sex: Female

DRUGS (5)
  1. G-CSF [Concomitant]
     Active Substance: GRANULOCYTE COLONY-STIMULATING FACTOR NOS
     Indication: PRODUCT USED FOR UNKNOWN INDICATION
     Route: 065
  2. GENOXAL [Suspect]
     Active Substance: CYCLOPHOSPHAMIDE
     Indication: INVASIVE DUCTAL BREAST CARCINOMA
     Route: 065
  3. GENOXAL [Suspect]
     Active Substance: CYCLOPHOSPHAMIDE
     Dosage: DOSE REDUCED
     Route: 065
  4. DOCETAXEL. [Suspect]
     Active Substance: DOCETAXEL
     Indication: INVASIVE DUCTAL BREAST CARCINOMA
     Route: 065
  5. DOCETAXEL. [Suspect]
     Active Substance: DOCETAXEL
     Dosage: DOSE REDUCED
     Route: 065

REACTIONS (1)
  - Periarticular thenar erythema with onycholysis [Recovering/Resolving]
